FAERS Safety Report 26139894 (Version 1)
Quarter: 2025Q4

REPORT INFORMATION
  Report Type: Spontaneous
  Country: US (occurrence: None)
  Receive Date: 20251209
  Receipt Date: 20251209
  Transmission Date: 20260117
  Serious: Yes (Other)
  Sender: FDA-CTU
  Company Number: None

PATIENT
  Age: 35 Year
  Sex: Female
  Weight: 126 kg

DRUGS (1)
  1. TIRZEPATIDE [Suspect]
     Active Substance: TIRZEPATIDE
     Indication: Obesity
     Dosage: OTHER FREQUENCY : WEEKLY;
     Route: 058
     Dates: start: 20250822, end: 20251019

REACTIONS (4)
  - Rash [None]
  - Urticaria [None]
  - Hypersensitivity [None]
  - Food allergy [None]

NARRATIVE: CASE EVENT DATE: 20251019
